FAERS Safety Report 15764465 (Version 6)
Quarter: 2019Q1

REPORT INFORMATION
  Report Type: Spontaneous
  Country: US (occurrence: US)
  Receive Date: 20181227
  Receipt Date: 20190319
  Transmission Date: 20190417
  Serious: Yes (Other)
  Sender: FDA-Public Use
  Company Number: US-ELI_LILLY_AND_COMPANY-US201812010211

PATIENT
  Sex: Male

DRUGS (6)
  1. AMBRISENTAN [Suspect]
     Active Substance: AMBRISENTAN
     Indication: PULMONARY ARTERIAL HYPERTENSION
     Dosage: UNK, UNKNOWN
     Route: 065
     Dates: start: 20090922
  2. TYVASO [Suspect]
     Active Substance: TREPROSTINIL
     Dosage: 54 UG, BID
     Route: 055
  3. CIALIS [Suspect]
     Active Substance: TADALAFIL
     Indication: PULMONARY ARTERIAL HYPERTENSION
     Dosage: UNK, UNKNOWN
     Route: 065
  4. TYVASO [Suspect]
     Active Substance: TREPROSTINIL
     Dosage: 54 UG, BID
     Route: 055
  5. TYVASO [Suspect]
     Active Substance: TREPROSTINIL
     Indication: PULMONARY ARTERIAL HYPERTENSION
     Dosage: 36 UG, QID
     Route: 055
     Dates: start: 20180124
  6. TYVASO [Suspect]
     Active Substance: TREPROSTINIL
     Dosage: 24 UG, BID
     Route: 055
     Dates: end: 20181220

REACTIONS (7)
  - Amnesia [Not Recovered/Not Resolved]
  - Headache [Unknown]
  - Euphoric mood [Recovered/Resolved]
  - Frustration tolerance decreased [Unknown]
  - Gastrooesophageal reflux disease [Unknown]
  - Depression [Unknown]
  - Crying [Unknown]

NARRATIVE: CASE EVENT DATE: 2018
